FAERS Safety Report 4731708-6 (Version None)
Quarter: 2005Q3

REPORT INFORMATION
  Report Type: 
  Country: None (occurrence: None)
  Receive Date: 20050725
  Receipt Date: 20050111
  Transmission Date: 20060218
  Serious: Yes (Life-Threatening)
  Sender: FDA-Public Use
  Company Number: WAES 0301USA01094

PATIENT
  Age: 55 Year
  Sex: Female
  Weight: 72.5755 kg

DRUGS (15)
  1. VIOXX [Suspect]
     Indication: PAIN
     Dosage: 25 MG/DAILY/PO
     Route: 048
     Dates: start: 20000125, end: 20021004
  2. ATACAND [Concomitant]
  3. CELEBREX [Concomitant]
  4. CELEXA [Concomitant]
  5. EFFEXOR XR [Concomitant]
  6. LOTENSIN [Concomitant]
  7. PAXIL CR [Concomitant]
  8. PRILOSEC [Concomitant]
  9. REMERON [Concomitant]
  10. VALIUM [Concomitant]
  11. WELLBUTRIN [Concomitant]
  12. ACETAMINOPHEN (+) HYDROCODONE BI [Concomitant]
  13. DIAZEPAM [Concomitant]
  14. ESTRADIOL [Concomitant]
  15. IRON (UNSPECIFIED) [Concomitant]

REACTIONS (28)
  - ADVERSE EVENT [None]
  - ANAEMIA [None]
  - ATHEROSCLEROSIS [None]
  - ATROPHIC VULVOVAGINITIS [None]
  - BACK PAIN [None]
  - BARRETT'S OESOPHAGUS [None]
  - CYSTOCELE [None]
  - DEPRESSION [None]
  - FEELING DRUNK [None]
  - HEADACHE [None]
  - HEPATITIS [None]
  - HYPERTENSION [None]
  - LIVER DISORDER [None]
  - NAUSEA [None]
  - OSTEOPOROSIS [None]
  - PAIN IN EXTREMITY [None]
  - PELVIC PROLAPSE [None]
  - POLYMYALGIA RHEUMATICA [None]
  - POLYNEUROPATHY [None]
  - RECTOCELE [None]
  - RENAL FAILURE [None]
  - RHINITIS SEASONAL [None]
  - SINUSITIS [None]
  - SOMNOLENCE [None]
  - STRESS INCONTINENCE [None]
  - TONGUE DISORDER [None]
  - TREMOR [None]
  - WEIGHT INCREASED [None]
